FAERS Safety Report 20776181 (Version 1)
Quarter: 2022Q2

REPORT INFORMATION
  Report Type: Spontaneous
  Country: US (occurrence: None)
  Receive Date: 20220502
  Receipt Date: 20220502
  Transmission Date: 20220721
  Serious: Yes (Life-Threatening, Hospitalization)
  Sender: FDA-Public Use
  Company Number: None

PATIENT

DRUGS (1)
  1. AMIODARONE HYDROCHLORIDE [Suspect]
     Active Substance: AMIODARONE HYDROCHLORIDE
     Indication: Tachycardia
     Dosage: FREQUENCY : DAILY;?
     Route: 048
     Dates: start: 20211220, end: 20220405

REACTIONS (10)
  - Dizziness [None]
  - Respiratory arrest [None]
  - Disease progression [None]
  - Dyspnoea [None]
  - Interstitial lung disease [None]
  - Cough [None]
  - Nasal congestion [None]
  - Oropharyngeal pain [None]
  - Pneumonia bacterial [None]
  - Pulmonary toxicity [None]

NARRATIVE: CASE EVENT DATE: 20220405
